FAERS Safety Report 5120115-2 (Version None)
Quarter: 2006Q4

REPORT INFORMATION
  Report Type: 
  Country: None (occurrence: None)
  Receive Date: 20061002
  Receipt Date: 20061002
  Transmission Date: 20070319
  Serious: Yes (Other)
  Sender: FDA-Public Use
  Company Number: None

PATIENT
  Age: 9 Year
  Sex: Male
  Weight: 36.6 kg

DRUGS (2)
  1. REMICADE [Suspect]
     Indication: JUVENILE ARTHRITIS
     Dosage: 10MG/KG 6 TO 10 WEEKS IV
     Route: 042
     Dates: start: 20030408, end: 20060829
  2. METHOTREXATE [Suspect]
     Indication: UVEITIS
     Dosage: 20 MG WEEKLY PO
     Route: 048
     Dates: start: 19990406, end: 20060904

REACTIONS (7)
  - ABDOMINAL PAIN [None]
  - CONDITION AGGRAVATED [None]
  - GASTRITIS [None]
  - HODGKIN'S DISEASE STAGE IV [None]
  - JUVENILE ARTHRITIS [None]
  - UVEITIS [None]
  - WEIGHT DECREASED [None]
